FAERS Safety Report 10732522 (Version 1)
Quarter: 2015Q1

REPORT INFORMATION
  Report Type: Spontaneous
  Country: CN (occurrence: None)
  Receive Date: 20150120
  Receipt Date: 20150120
  Transmission Date: 20150721
  Serious: Yes (Other)
  Sender: FDA-Public Use
  Company Number: INT_00634_2015

PATIENT
  Sex: Female

DRUGS (2)
  1. GEMCITABINE [Suspect]
     Active Substance: GEMCITABINE\GEMCITABINE HYDROCHLORIDE
     Indication: BREAST CANCER
     Dosage: 1000 MG/M2, ON DAYS 1 AND 8 EVERY 21 DAYS, INTRAVENOUS (NOT OTHTERWISE SPECIFIED)
     Route: 042
  2. CISPLATIN (CISPLATIN) (HQ SPECIALTY) [Suspect]
     Active Substance: CISPLATIN
     Indication: BREAST CANCER
     Dosage: 25 MG/M2, ONDAY 1 THROUGH 3 EVERY 21 DAYS, INTRAVENOUS (NOT OTHERWISE SPECIFIED
     Route: 042

REACTIONS (1)
  - Febrile neutropenia [None]
